FAERS Safety Report 22166933 (Version 1)
Quarter: 2023Q1

REPORT INFORMATION
  Report Type: Spontaneous
  Country: US (occurrence: None)
  Receive Date: 20230331
  Receipt Date: 20230331
  Transmission Date: 20230418
  Serious: Yes (Other)
  Sender: FDA-Public Use
  Company Number: None

PATIENT
  Age: 32 Year
  Sex: Female

DRUGS (1)
  1. NUCALA [Suspect]
     Active Substance: MEPOLIZUMAB
     Indication: Asthma
     Dosage: FREQUENCY : MONTHLY;?
     Route: 058
     Dates: start: 20221010

REACTIONS (4)
  - Urticaria [None]
  - Post procedural complication [None]
  - Type IV hypersensitivity reaction [None]
  - Food allergy [None]

NARRATIVE: CASE EVENT DATE: 20230302
